FAERS Safety Report 15143338 (Version 1)
Quarter: 2018Q3

REPORT INFORMATION
  Report Type: Spontaneous
  Country: US (occurrence: US)
  Receive Date: 20180713
  Receipt Date: 20180713
  Transmission Date: 20181010
  Serious: Yes (Other)
  Sender: FDA-Public Use
  Company Number: US-JNJFOC-20180714023

PATIENT
  Age: 65 Year
  Sex: Male

DRUGS (16)
  1. ALLOPURINOL. [Concomitant]
     Active Substance: ALLOPURINOL
  2. COD LIVER OIL [Concomitant]
     Active Substance: COD LIVER OIL
     Indication: CHRONIC LYMPHOCYTIC LEUKAEMIA
     Dates: start: 20180124, end: 20180416
  3. COD LIVER OIL [Concomitant]
     Active Substance: COD LIVER OIL
     Indication: CHRONIC LYMPHOCYTIC LEUKAEMIA
  4. VITAMIN D3 [Concomitant]
     Active Substance: CHOLECALCIFEROL
  5. FOLIC ACID. [Concomitant]
     Active Substance: FOLIC ACID
  6. VITAMIN E                          /00110501/ [Concomitant]
     Active Substance: TOCOPHEROL
  7. CALCIUM W/MAGNESIUM/ZINC [Concomitant]
  8. IMBRUVICA [Suspect]
     Active Substance: IBRUTINIB
     Indication: CHRONIC LYMPHOCYTIC LEUKAEMIA
     Route: 048
     Dates: start: 20180417, end: 20180618
  9. IMBRUVICA [Suspect]
     Active Substance: IBRUTINIB
     Indication: CHRONIC LYMPHOCYTIC LEUKAEMIA
     Route: 048
     Dates: start: 20180628
  10. IMBRUVICA [Concomitant]
     Active Substance: IBRUTINIB
     Indication: CHRONIC LYMPHOCYTIC LEUKAEMIA
     Route: 048
     Dates: start: 20180124, end: 20180416
  11. COD LIVER OIL [Concomitant]
     Active Substance: COD LIVER OIL
     Indication: CHRONIC LYMPHOCYTIC LEUKAEMIA
  12. MULTIVITAMINS [Concomitant]
     Active Substance: VITAMINS
  13. ACYCLOVIR. [Concomitant]
     Active Substance: ACYCLOVIR
  14. VITAMIN A                          /00056001/ [Concomitant]
     Active Substance: RETINOL
  15. TYLENOL [Concomitant]
     Active Substance: ACETAMINOPHEN
  16. CALCIUM + MAGNESIUM [Concomitant]

REACTIONS (2)
  - Surgery [Unknown]
  - Muscle spasms [Unknown]

NARRATIVE: CASE EVENT DATE: 201805
